FAERS Safety Report 10203547 (Version 1)
Quarter: 2014Q2

REPORT INFORMATION
  Report Type: Spontaneous
  Country: US (occurrence: US)
  Receive Date: 20140529
  Receipt Date: 20140529
  Transmission Date: 20141212
  Serious: Yes (Hospitalization, Other)
  Sender: FDA-Public Use
  Company Number: US-SUN PHARMACEUTICAL INDUSTRIES LTD-2014SUN01156

PATIENT
  Age: 22 Year
  Sex: Male

DRUGS (1)
  1. SULFAMETHOXAZOLE AND TRIMETHOPRIM [Suspect]
     Indication: RASH PUSTULAR
     Dosage: 480 MG, BID
     Route: 065

REACTIONS (1)
  - Hypersensitivity vasculitis [Recovered/Resolved with Sequelae]
